FAERS Safety Report 8545736-6 (Version None)
Quarter: 2012Q3

REPORT INFORMATION
  Report Type: 
  Country: None (occurrence: None)
  Receive Date: 20120727
  Receipt Date: 20120718
  Transmission Date: 20120928
  Serious: Yes (Life-Threatening)
  Sender: FDA-Public Use
  Company Number: GB-TEVA-349199ISR

PATIENT
  Age: 52 Year
  Sex: Female

DRUGS (11)
  1. ALBUTEROL SULATE [Concomitant]
  2. MOMETASONE FUROATE [Concomitant]
     Dosage: 2 DOSAGE FORMS;
  3. LACTULOSE [Concomitant]
     Dosage: 20 ML;
  4. DESLORATADINE [Concomitant]
     Dosage: 5 MILLIGRAM;
  5. VITAMIN B SUBSTANCES [Concomitant]
     Dosage: 3 DOSAGE FORMS;
  6. OMEPRAZOLE [Concomitant]
     Dosage: 20 MILLIGRAM;
  7. LETROZOLE [Suspect]
     Indication: BREAST CANCER
     Dosage: 2.5 MILLIGRAM;
     Route: 048
     Dates: start: 20120506, end: 20120516
  8. FERROUS FUMARATE [Concomitant]
     Dosage: 630 MILLIGRAM;
  9. THIAMINE [Concomitant]
     Dosage: 200 MILLIGRAM;
  10. BECLOMETHASONE DIPROPIONATE [Concomitant]
     Dosage: 2 DOSAGE FORMS;
  11. LEVOTHYROXINE SODIUM [Concomitant]
     Dosage: 100 MICROGRAM;

REACTIONS (2)
  - JAUNDICE [None]
  - LIVER DISORDER [None]
